FAERS Safety Report 10370369 (Version 1)
Quarter: 2014Q3

REPORT INFORMATION
  Report Type: Spontaneous
  Country: CA (occurrence: CA)
  Receive Date: 20140808
  Receipt Date: 20140808
  Transmission Date: 20150326
  Serious: Yes (Other)
  Sender: FDA-Public Use
  Company Number: CA-ROCHE-1446287

PATIENT
  Age: 33 Year
  Sex: Female

DRUGS (3)
  1. TYKERB [Suspect]
     Active Substance: LAPATINIB DITOSYLATE
     Indication: PRODUCT USED FOR UNKNOWN INDICATION
     Route: 048
  2. XELODA [Suspect]
     Active Substance: CAPECITABINE
     Indication: PRODUCT USED FOR UNKNOWN INDICATION
     Route: 065
  3. COUMADIN [Concomitant]
     Active Substance: WARFARIN SODIUM
     Route: 065

REACTIONS (23)
  - Dry skin [Unknown]
  - Flatulence [Unknown]
  - Nasopharyngitis [Unknown]
  - Erythema [Unknown]
  - Fatigue [Unknown]
  - HER-2 positive breast cancer [Unknown]
  - Malignant neoplasm progression [Unknown]
  - Breast cancer metastatic [Unknown]
  - Diarrhoea [Unknown]
  - Headache [Unknown]
  - Pain in extremity [Unknown]
  - Thrombosis in device [Unknown]
  - Inflammation [Unknown]
  - Local swelling [Unknown]
  - Nail bed tenderness [Unknown]
  - Pain [Unknown]
  - Skin fissures [Unknown]
  - Abdominal distension [Unknown]
  - Insomnia [Unknown]
  - Rash macular [Unknown]
  - Viral infection [Unknown]
  - Gastric disorder [Unknown]
  - Skin induration [Unknown]
